FAERS Safety Report 17581872 (Version 1)
Quarter: 2020Q1

REPORT INFORMATION
  Report Type: Spontaneous
  Country: GB (occurrence: GB)
  Receive Date: 20200325
  Receipt Date: 20200325
  Transmission Date: 20200409
  Serious: Yes (Hospitalization)
  Sender: FDA-Public Use
  Company Number: GB-MYLANLABS-2020M1030563

PATIENT
  Age: 71 Year
  Sex: Male

DRUGS (3)
  1. WARFARIN [Suspect]
     Active Substance: WARFARIN
     Indication: PRODUCT USED FOR UNKNOWN INDICATION
     Dosage: UNK
  2. AMOXICILLIN. [Interacting]
     Active Substance: AMOXICILLIN
     Indication: RESPIRATORY TRACT INFECTION
     Dosage: UNK
     Dates: start: 20191023
  3. CLARITHROMYCIN. [Interacting]
     Active Substance: CLARITHROMYCIN
     Indication: RESPIRATORY TRACT INFECTION
     Dosage: UNK
     Dates: start: 20191026

REACTIONS (4)
  - Musculoskeletal chest pain [Unknown]
  - Drug interaction [Unknown]
  - International normalised ratio increased [Unknown]
  - Abdominal wall haematoma [Unknown]

NARRATIVE: CASE EVENT DATE: 20191101
